FAERS Safety Report 20389628 (Version 1)
Quarter: 2022Q1

REPORT INFORMATION
  Report Type: Spontaneous
  Country: DE (occurrence: DE)
  Receive Date: 20220128
  Receipt Date: 20220128
  Transmission Date: 20220424
  Serious: Yes (Other)
  Sender: FDA-Public Use
  Company Number: None

PATIENT
  Sex: Female
  Weight: 65 kg

DRUGS (2)
  1. CIPROFLOXACIN [Suspect]
     Active Substance: CIPROFLOXACIN
     Indication: Urinary tract infection
     Dosage: UNK
     Route: 042
     Dates: start: 201707, end: 201707
  2. CIPROFLOXACIN [Suspect]
     Active Substance: CIPROFLOXACIN
     Indication: Sepsis

REACTIONS (6)
  - Venous thrombosis limb [Recovered/Resolved with Sequelae]
  - Middle insomnia [Recovered/Resolved with Sequelae]
  - Application site pain [Recovered/Resolved with Sequelae]
  - Application site swelling [Recovered/Resolved with Sequelae]
  - Application site pain [Recovered/Resolved with Sequelae]
  - Pain in extremity [Recovered/Resolved with Sequelae]

NARRATIVE: CASE EVENT DATE: 20170701
